FAERS Safety Report 4273731-4 (Version None)
Quarter: 2004Q1

REPORT INFORMATION
  Report Type: 
  Country: None (occurrence: None)
  Receive Date: 20040116
  Receipt Date: 20040116
  Transmission Date: 20041129
  Serious: Yes (Hospitalization, Other)
  Sender: FDA-Public Use
  Company Number: None

PATIENT
  Age: 41 Year
  Sex: Male
  Weight: 88.9 kg

DRUGS (4)
  1. TRAZODONE HCL [Suspect]
     Indication: SLEEP DISORDER
     Dosage: 50-150 MG HS
     Dates: start: 20031009, end: 20031113
  2. CELEXA [Concomitant]
  3. TRAZODONE HCL [Concomitant]
  4. ZIPRASIDONE [Concomitant]

REACTIONS (1)
  - PRIAPISM [None]
